FAERS Safety Report 14567044 (Version 3)
Quarter: 2018Q1

REPORT INFORMATION
  Report Type: Spontaneous
  Country: IT (occurrence: IT)
  Receive Date: 20180223
  Receipt Date: 20180320
  Transmission Date: 20180509
  Serious: Yes (Other)
  Sender: FDA-Public Use
  Company Number: IT-PFIZER INC-2017121961

PATIENT
  Age: 35 Year
  Sex: Male

DRUGS (4)
  1. VALPINAX [Suspect]
     Active Substance: ANISOTROPINE METHYLBROMIDE\DIAZEPAM
     Dosage: 2 DF, TOTAL
     Route: 048
     Dates: start: 20161120, end: 20161120
  2. ETHYL ALCOHOL [Concomitant]
     Active Substance: ALCOHOL
     Dosage: UNK
  3. TAVOR (LORAZEPAM) [Suspect]
     Active Substance: LORAZEPAM
     Dosage: 1 DF, TOTAL
     Route: 048
     Dates: start: 20161120, end: 20161120
  4. FLUOXETINE [Suspect]
     Active Substance: FLUOXETINE HYDROCHLORIDE
     Dosage: 20 DF, TOTAL
     Route: 048
     Dates: start: 20161120, end: 20161120

REACTIONS (1)
  - Drug abuse [Unknown]

NARRATIVE: CASE EVENT DATE: 20161120
